FAERS Safety Report 10588603 (Version 2)
Quarter: 2014Q4

REPORT INFORMATION
  Report Type: Spontaneous
  Country: US (occurrence: US)
  Receive Date: 20141117
  Receipt Date: 20141226
  Transmission Date: 20150529
  Serious: Yes (Hospitalization)
  Sender: FDA-Public Use
  Company Number: US-BAYER-2014-168463

PATIENT
  Age: 32 Year
  Sex: Female

DRUGS (2)
  1. MIRENA [Suspect]
     Active Substance: LEVONORGESTREL
     Indication: CONTRACEPTION
     Dosage: 20 MCG/24HR, CONT
     Route: 015
     Dates: start: 20080910, end: 20090504
  2. WELLBUTRIN [Concomitant]
     Active Substance: BUPROPION HYDROCHLORIDE
     Dosage: UNK
     Dates: start: 200708, end: 201212

REACTIONS (15)
  - Depressed mood [None]
  - Uterine perforation [None]
  - Emotional distress [None]
  - Drug ineffective [None]
  - Pain [None]
  - Depression [None]
  - Fear [None]
  - Genital haemorrhage [None]
  - Internal injury [None]
  - Pelvic pain [None]
  - Injury [None]
  - Anxiety [None]
  - Abdominal pain [None]
  - Pregnancy with contraceptive device [None]
  - Medical device discomfort [None]

NARRATIVE: CASE EVENT DATE: 200809
